FAERS Safety Report 5009455-5 (Version None)
Quarter: 2006Q2

REPORT INFORMATION
  Report Type: 
  Country: None (occurrence: None)
  Receive Date: 20060524
  Receipt Date: 20060517
  Transmission Date: 20061013
  Serious: Yes (Hospitalization)
  Sender: FDA-Public Use
  Company Number: FR-SOLVAY-00206001623

PATIENT
  Age: 52 Year
  Sex: Female

DRUGS (2)
  1. UTROGESTAN [Suspect]
     Indication: HOT FLUSH
     Dosage: DAILY DOSE: 100 MILLIGRAM(S)
     Route: 048
     Dates: start: 20050901, end: 20060413
  2. ESTREVA [Suspect]
     Indication: HOT FLUSH
     Dosage: DAILY DOSE: 1.5 MILLIGRAM(S)
     Route: 048
     Dates: start: 20060316, end: 20060413

REACTIONS (1)
  - PANCREATITIS ACUTE [None]
